FAERS Safety Report 12663133 (Version 1)
Quarter: 2016Q3

REPORT INFORMATION
  Report Type: Report from Study
  Country: MX (occurrence: MX)
  Receive Date: 20160818
  Receipt Date: 20160818
  Transmission Date: 20161109
  Serious: Yes (Hospitalization)
  Sender: FDA-Public Use
  Company Number: PHHY2016MX097696

PATIENT
  Sex: Female
  Weight: 52 kg

DRUGS (1)
  1. EXELON PATCH [Suspect]
     Active Substance: RIVASTIGMINE
     Indication: SENILE DEMENTIA
     Dosage: 4.6 MG, (PATCH 5 CM 2)
     Route: 062

REACTIONS (3)
  - Jaw fracture [Recovered/Resolved]
  - Fall [Recovered/Resolved]
  - Drug ineffective for unapproved indication [Unknown]
